FAERS Safety Report 9759962 (Version 1)
Quarter: 2013Q4

REPORT INFORMATION
  Report Type: Spontaneous
  Country: US (occurrence: US)
  Receive Date: 20131216
  Receipt Date: 20131216
  Transmission Date: 20140711
  Serious: No
  Sender: FDA-Public Use
  Company Number: US-BAXTER-2013BAX022819

PATIENT
  Sex: Male
  Weight: 108 kg

DRUGS (3)
  1. 0.9% SODIUM CHLORIDE INJECTION [Suspect]
     Indication: RENAL FAILURE CHRONIC
     Route: 042
     Dates: start: 201005
  2. CALCITROL [Suspect]
     Indication: PRODUCT USED FOR UNKNOWN INDICATION
     Route: 048
  3. ASPIRIN [Suspect]
     Indication: PRODUCT USED FOR UNKNOWN INDICATION
     Route: 048

REACTIONS (3)
  - Weight increased [Unknown]
  - Abdominal pain [Recovered/Resolved]
  - Haemodialysis complication [Recovered/Resolved]
